FAERS Safety Report 5847626-6 (Version None)
Quarter: 2008Q3

REPORT INFORMATION
  Report Type: 
  Country: None (occurrence: None)
  Receive Date: 20080818
  Receipt Date: 20080808
  Transmission Date: 20090109
  Serious: Yes (Other)
  Sender: FDA-Public Use
  Company Number: GB-JNJFOC-20080600335

PATIENT
  Age: 52 Year
  Sex: Female

DRUGS (2)
  1. HALOPERIDOL [Suspect]
     Indication: SCHIZOPHRENIA
     Route: 065
  2. OLANZAPINE [Concomitant]
     Indication: SCHIZOPHRENIA
     Route: 065

REACTIONS (4)
  - ABDOMINAL DISTENSION [None]
  - DELUSION [None]
  - HYPERPROLACTINAEMIA [None]
  - SOMATOFORM DISORDER PREGNANCY [None]
